FAERS Safety Report 16597619 (Version 2)
Quarter: 2019Q3

REPORT INFORMATION
  Report Type: Spontaneous
  Country: FR (occurrence: FR)
  Receive Date: 20190719
  Receipt Date: 20190726
  Transmission Date: 20191004
  Serious: Yes (Hospitalization, Other)
  Sender: FDA-Public Use
  Company Number: FR-BRISTOL-MYERS SQUIBB COMPANY-BMS-2019-068987

PATIENT
  Age: 84 Year
  Sex: Male

DRUGS (3)
  1. JAKAVI [Suspect]
     Active Substance: RUXOLITINIB
     Indication: ESSENTIAL THROMBOCYTHAEMIA
     Dosage: 20 MILLIGRAM
     Route: 048
     Dates: start: 201709
  2. EPREX [Suspect]
     Active Substance: ERYTHROPOIETIN
     Indication: ESSENTIAL THROMBOCYTHAEMIA
     Dosage: 20000 INTERNATIONAL UNIT, QWK
     Route: 058
     Dates: start: 201808
  3. HYDREA [Suspect]
     Active Substance: HYDROXYUREA
     Indication: ESSENTIAL THROMBOCYTHAEMIA
     Dosage: 1 DOSAGE FORM, QD
     Route: 048
     Dates: start: 201104, end: 201709

REACTIONS (1)
  - Tongue neoplasm malignant stage unspecified [Not Recovered/Not Resolved]

NARRATIVE: CASE EVENT DATE: 20190502
